FAERS Safety Report 8534601-6 (Version None)
Quarter: 2012Q3

REPORT INFORMATION
  Report Type: 
  Country: None (occurrence: None)
  Receive Date: 20120724
  Receipt Date: 20120723
  Transmission Date: 20120928
  Serious: Yes (Life-Threatening, Other)
  Sender: FDA-Public Use
  Company Number: PHHY2012GB053691

PATIENT
  Age: 89 Year
  Sex: Female
  Weight: 60 kg

DRUGS (4)
  1. RANITIDINE [Concomitant]
     Dosage: 150 MG
  2. HUMULIN R [Concomitant]
     Indication: DIABETES MELLITUS
  3. DOXYCYCLINE [Suspect]
     Indication: SKIN ULCER
     Dosage: 100 MG, BID
     Route: 048
     Dates: start: 20120606, end: 20120608
  4. DIGOXIN [Concomitant]
     Dosage: 625 MG

REACTIONS (1)
  - HYPERGLYCAEMIA [None]
